FAERS Safety Report 8141409-2 (Version None)
Quarter: 2012Q1

REPORT INFORMATION
  Report Type: 
  Country: None (occurrence: None)
  Receive Date: 20120216
  Receipt Date: 20120212
  Transmission Date: 20120608
  Serious: Yes (Hospitalization)
  Sender: FDA-Public Use
  Company Number: PHHY2012EG001611

PATIENT
  Age: 60 Year
  Sex: Female

DRUGS (2)
  1. EXFORGE [Suspect]
     Indication: HYPERTENSION
     Dosage: 1 DF, (1 TABLET PER DAY WHEN BLOOD PRESSURE IS HIGH AND 0.5 TABLET WHEN BP IS STABLE)
     Route: 048
     Dates: start: 20100718
  2. BORTLIN 50 [Concomitant]

REACTIONS (7)
  - BLOOD PRESSURE INCREASED [None]
  - FALL [None]
  - SPINAL FRACTURE [None]
  - DIZZINESS [None]
  - TOOTH INJURY [None]
  - WRONG TECHNIQUE IN DRUG USAGE PROCESS [None]
  - HYPERGLYCAEMIA [None]
